FAERS Safety Report 9331176 (Version 1)
Quarter: 2013Q2

REPORT INFORMATION
  Report Type: Spontaneous
  Country: GB (occurrence: GB)
  Receive Date: 20130605
  Receipt Date: 20130605
  Transmission Date: 20140414
  Serious: Yes (Hospitalization)
  Sender: FDA-Public Use
  Company Number: PHHY2013GB055105

PATIENT
  Age: 55 Year
  Sex: 0

DRUGS (5)
  1. CO-AMOXICLAV [Suspect]
     Dosage: 250MG/125MG
     Route: 048
     Dates: start: 20130205, end: 20130219
  2. DOXYCYCLINE [Suspect]
     Dosage: 200 MG, QD
     Route: 048
     Dates: start: 20130226
  3. DOXYCYCLINE [Suspect]
     Dosage: 100 MG, QD
     Route: 048
     Dates: start: 20130227, end: 20130309
  4. FLUTICASONE [Concomitant]
     Dosage: 2 DF, BID
     Route: 045
  5. OMEPRAZOLE [Concomitant]
     Dosage: 2 DF, QD, 1-2 ONCE  DAILY
     Route: 048
     Dates: start: 201303

REACTIONS (2)
  - Cholestasis [Unknown]
  - Jaundice cholestatic [Recovering/Resolving]
